FAERS Safety Report 14263244 (Version 1)
Quarter: 2017Q4

REPORT INFORMATION
  Report Type: Spontaneous
  Country: US (occurrence: US)
  Receive Date: 20171208
  Receipt Date: 20171208
  Transmission Date: 20180321
  Serious: Yes (Hospitalization)
  Sender: FDA-Public Use
  Company Number: US-JNJFOC-20171208068

PATIENT
  Age: 74 Year
  Sex: Male

DRUGS (6)
  1. ATORVASTATIN [Concomitant]
     Active Substance: ATORVASTATIN
  2. ASPIRIN. [Suspect]
     Active Substance: ASPIRIN
     Indication: PRODUCT USED FOR UNKNOWN INDICATION
     Route: 065
  3. IMBRUVICA [Suspect]
     Active Substance: IBRUTINIB
     Indication: B-CELL SMALL LYMPHOCYTIC LYMPHOMA
     Route: 048
     Dates: start: 20170603, end: 20170605
  4. IMBRUVICA [Suspect]
     Active Substance: IBRUTINIB
     Indication: B-CELL SMALL LYMPHOCYTIC LYMPHOMA
     Route: 048
     Dates: start: 20170606, end: 20170616
  5. PRILOSEC [Concomitant]
     Active Substance: OMEPRAZOLE MAGNESIUM
     Indication: GASTRIC DISORDER
  6. CRESTOR [Concomitant]
     Active Substance: ROSUVASTATIN CALCIUM
     Indication: BLOOD CHOLESTEROL INCREASED

REACTIONS (26)
  - Headache [Unknown]
  - Paraesthesia oral [Unknown]
  - Off label use [Unknown]
  - Fatigue [Unknown]
  - Flushing [Unknown]
  - Migraine [Not Recovered/Not Resolved]
  - Faeces soft [Unknown]
  - Lethargy [Unknown]
  - Transient ischaemic attack [Recovering/Resolving]
  - Vomiting [Unknown]
  - Dysphonia [Unknown]
  - Spinal cord haemorrhage [Recovered/Resolved]
  - Product use issue [Unknown]
  - Influenza like illness [Unknown]
  - Night sweats [Unknown]
  - Diarrhoea [Unknown]
  - Abdominal discomfort [Unknown]
  - Blood pressure systolic increased [Recovered/Resolved]
  - Dizziness [Unknown]
  - Pain in extremity [Unknown]
  - Neuropathy peripheral [Not Recovered/Not Resolved]
  - Heart rate increased [Unknown]
  - Eructation [Unknown]
  - Pain [Unknown]
  - Abdominal pain upper [Unknown]
  - Epistaxis [Unknown]

NARRATIVE: CASE EVENT DATE: 201706
